FAERS Safety Report 9268696 (Version 1)
Quarter: 2013Q2

REPORT INFORMATION
  Report Type: Spontaneous
  Country: US (occurrence: US)
  Receive Date: 20130502
  Receipt Date: 20130502
  Transmission Date: 20140414
  Serious: No
  Sender: FDA-Public Use
  Company Number: US-ALEXION-A201300245

PATIENT
  Sex: Female

DRUGS (3)
  1. SOLIRIS 300MG [Suspect]
     Indication: PRODUCT USED FOR UNKNOWN INDICATION
     Dosage: UNK
     Route: 042
  2. NEUPOGEN [Concomitant]
     Dosage: UNK, TIW
  3. POTASSIUM [Concomitant]
     Indication: HYPOKALAEMIA

REACTIONS (2)
  - Hypokalaemia [Unknown]
  - Influenza [Unknown]
